FAERS Safety Report 17094311 (Version 1)
Quarter: 2019Q4

REPORT INFORMATION
  Report Type: Report from Study
  Country: CN (occurrence: CN)
  Receive Date: 20191129
  Receipt Date: 20191129
  Transmission Date: 20200122
  Serious: Yes (Other)
  Sender: FDA-Public Use
  Company Number: NVSC2019CN052844

PATIENT
  Age: 44 Year
  Sex: Male

DRUGS (11)
  1. BASILIXIMAB [Suspect]
     Active Substance: BASILIXIMAB
     Indication: PRODUCT USED FOR UNKNOWN INDICATION
     Dosage: 20 MG, QD
     Route: 065
     Dates: start: 20170416, end: 20170416
  2. FERROUS SULFATE. [Concomitant]
     Active Substance: FERROUS SULFATE
     Indication: ANAEMIA
     Dosage: 50 MG, TID
     Route: 048
     Dates: start: 20170417, end: 20170511
  3. RACEANISODAMINE HYDROCHLORIDE [Concomitant]
     Indication: MUSCLE SPASMS
     Dosage: 10 MG, BID
     Route: 042
     Dates: start: 20170416, end: 20170418
  4. OMEPRAZOLE SODIUM [Concomitant]
     Active Substance: OMEPRAZOLE SODIUM
     Indication: PROPHYLAXIS
     Dosage: 40 MG, BID
     Route: 042
     Dates: start: 20170417, end: 20170422
  5. FUROSEMIDE. [Concomitant]
     Active Substance: FUROSEMIDE
     Indication: DIURETIC THERAPY
     Dosage: 200 MG, BID
     Route: 042
     Dates: start: 20170416, end: 20170417
  6. BASILIXIMAB [Suspect]
     Active Substance: BASILIXIMAB
     Dosage: 20 MG, QD
     Route: 065
     Dates: start: 20170420, end: 20170420
  7. MYFORTIC [Suspect]
     Active Substance: MYCOPHENOLATE SODIUM
     Indication: RENAL TRANSPLANT
     Dosage: 2160 MG, QD
     Route: 065
     Dates: start: 20170416, end: 20170420
  8. PHENTOLAMINE MESYLATE. [Concomitant]
     Active Substance: PHENTOLAMINE MESYLATE
     Indication: HYPERTENSION
     Dosage: 10 MG, BID
     Route: 042
     Dates: start: 20170417, end: 20170418
  9. MEROPENEM. [Concomitant]
     Active Substance: MEROPENEM
     Indication: INFECTION
     Dosage: 1 G, TID
     Route: 042
     Dates: start: 20170417, end: 20170525
  10. ALPROSTADIL. [Concomitant]
     Active Substance: ALPROSTADIL
     Indication: THROMBOSIS
     Dosage: 10 UG, BID
     Route: 042
     Dates: start: 20170417, end: 20170502
  11. SALBUTAMOL SULFATE [Concomitant]
     Active Substance: ALBUTEROL SULFATE
     Indication: MUSCLE SPASMS
     Dosage: 1.2 MG, BID
     Route: 042
     Dates: start: 20170417, end: 20170422

REACTIONS (1)
  - Complications of transplanted kidney [Recovered/Resolved with Sequelae]

NARRATIVE: CASE EVENT DATE: 20170417
